FAERS Safety Report 9716152 (Version 1)
Quarter: 2013Q4

REPORT INFORMATION
  Report Type: Spontaneous
  Country: US (occurrence: US)
  Receive Date: 20131127
  Receipt Date: 20131127
  Transmission Date: 20140711
  Serious: No
  Sender: FDA-Public Use
  Company Number: US-BAYER-2013-139693

PATIENT
  Sex: 0

DRUGS (2)
  1. ALEVE CAPLET [Suspect]
  2. ADVIL [Concomitant]

REACTIONS (3)
  - Local swelling [None]
  - Pain in extremity [None]
  - Feelings of worthlessness [None]
